FAERS Safety Report 11762467 (Version 1)
Quarter: 2015Q4

REPORT INFORMATION
  Report Type: Report from Study
  Country: NL (occurrence: NL)
  Receive Date: 20151120
  Receipt Date: 20151120
  Transmission Date: 20160304
  Serious: Yes (Hospitalization)
  Sender: FDA-Public Use
  Company Number: NL-ABBVIE-15P-114-1500710-00

PATIENT
  Sex: Male
  Weight: 110 kg

DRUGS (1)
  1. LUCRIN [Suspect]
     Active Substance: LEUPROLIDE ACETATE
     Indication: PROSTATE CANCER
     Route: 058
     Dates: start: 20130909

REACTIONS (3)
  - Inflammation [Not Recovered/Not Resolved]
  - Blood test abnormal [Unknown]
  - Asthenia [Not Recovered/Not Resolved]
